FAERS Safety Report 4401676-5 (Version None)
Quarter: 2004Q3

REPORT INFORMATION
  Report Type: 
  Country: None (occurrence: None)
  Receive Date: 20040719
  Receipt Date: 20040219
  Transmission Date: 20050211
  Serious: Yes (Other)
  Sender: FDA-Public Use
  Company Number: JP-GLAXOSMITHKLINE-B0324107A

PATIENT
  Age: 71 Year
  Sex: Female
  Weight: 62 kg

DRUGS (7)
  1. PAXIL [Suspect]
     Indication: DEPRESSION
     Route: 048
     Dates: start: 20031127, end: 20040207
  2. MERISLON [Concomitant]
     Indication: DIZZINESS
     Dosage: 18MG PER DAY
     Route: 048
  3. CEROCRAL [Concomitant]
     Indication: DIZZINESS
     Dosage: 30MG PER DAY
     Route: 048
     Dates: start: 20020205
  4. RIZE [Concomitant]
     Indication: AUTONOMIC NERVOUS SYSTEM IMBALANCE
     Dosage: 15MG PER DAY
     Route: 048
  5. DIAZEPAM [Concomitant]
     Indication: AUTONOMIC NERVOUS SYSTEM IMBALANCE
     Dosage: 1MG PER DAY
     Route: 048
  6. DEPAS [Concomitant]
     Indication: TENSION HEADACHE
     Dosage: .5MG PER DAY
     Route: 048
     Dates: start: 20030516
  7. GRANDAXIN [Concomitant]
     Indication: AUTONOMIC NERVOUS SYSTEM IMBALANCE
     Dosage: 150MG PER DAY
     Route: 048
     Dates: end: 20040110

REACTIONS (2)
  - TONGUE PARALYSIS [None]
  - TREMOR [None]
